FAERS Safety Report 8098007-9 (Version None)
Quarter: 2012Q1

REPORT INFORMATION
  Report Type: 
  Country: None (occurrence: None)
  Receive Date: 20120128
  Receipt Date: 20110723
  Transmission Date: 20120608
  Serious: No
  Sender: FDA-Public Use
  Company Number: US-ABBOTT-11P-163-0841965-00

PATIENT
  Age: 32 Year
  Sex: Female

DRUGS (6)
  1. MARINOL [Concomitant]
     Indication: GASTRIC DISORDER
  2. HUMIRA [Suspect]
     Dates: start: 20110714, end: 20110714
  3. DEPAKOTE [Concomitant]
     Indication: BIPOLAR DISORDER
  4. HUMIRA [Suspect]
     Indication: CROHN'S DISEASE
     Dates: start: 20110601, end: 20110601
  5. KLONOPIN [Concomitant]
     Indication: ANXIETY
  6. PERCOCET [Concomitant]
     Indication: PAIN

REACTIONS (6)
  - DIZZINESS [None]
  - DEVICE MALFUNCTION [None]
  - NAUSEA [None]
  - DIARRHOEA [None]
  - GASTRIC PH DECREASED [None]
  - VOMITING [None]
